FAERS Safety Report 5630851-7 (Version None)
Quarter: 2008Q1

REPORT INFORMATION
  Report Type: 
  Country: None (occurrence: None)
  Receive Date: 20080219
  Receipt Date: 20080218
  Transmission Date: 20080703
  Serious: Yes (Disabling)
  Sender: FDA-Public Use
  Company Number: US-ASTRAZENECA-2008UW01560

PATIENT
  Age: 30 Year
  Sex: Female
  Weight: 63.6 kg

DRUGS (2)
  1. SEROQUEL [Suspect]
     Indication: BIPOLAR DISORDER
     Dosage: ESTIMATED AT 1200 MG OR MORE PER DAY
     Route: 048
  2. SEROQUEL [Suspect]
     Dosage: ESTIMATED AT 1200 MG OR MORE PER DAY
     Route: 048
     Dates: start: 20070101, end: 20080122

REACTIONS (2)
  - DRUG ABUSE [None]
  - INTENTIONAL OVERDOSE [None]
